FAERS Safety Report 4999142-1 (Version None)
Quarter: 2006Q2

REPORT INFORMATION
  Report Type: 
  Country: None (occurrence: None)
  Receive Date: 20060509
  Receipt Date: 20060418
  Transmission Date: 20061013
  Serious: Yes (Other)
  Sender: FDA-Public Use
  Company Number: US200602004506

PATIENT
  Age: 60 Year
  Sex: Female

DRUGS (5)
  1. FORTEO [Suspect]
     Indication: OSTEOPOROSIS
     Dosage: 20 UG/DAY,
     Dates: start: 20051001
  2. FORTEO [Concomitant]
  3. FORTEO [Concomitant]
  4. CALCIUM (CALCIUM) [Concomitant]
  5. VITAMIN D [Concomitant]

REACTIONS (2)
  - PAIN [None]
  - PUBIC RAMI FRACTURE [None]
